FAERS Safety Report 7960246-2 (Version None)
Quarter: 2011Q4

REPORT INFORMATION
  Report Type: 
  Country: None (occurrence: None)
  Receive Date: 20111206
  Receipt Date: 20111128
  Transmission Date: 20120403
  Serious: Yes (Other)
  Sender: FDA-Public Use
  Company Number: US-ASTRAZENECA-2011SE63978

PATIENT
  Age: 73 Year
  Sex: Female

DRUGS (1)
  1. CRESTOR [Suspect]
     Route: 048

REACTIONS (4)
  - ARTERIOSCLEROSIS CORONARY ARTERY [None]
  - DRUG DOSE OMISSION [None]
  - CATARACT [None]
  - VISUAL IMPAIRMENT [None]
